FAERS Safety Report 5366983-0 (Version None)
Quarter: 2007Q2

REPORT INFORMATION
  Report Type: 
  Country: None (occurrence: None)
  Receive Date: 20070619
  Receipt Date: 20070607
  Transmission Date: 20071010
  Serious: Yes (Disabling, Other)
  Sender: FDA-Public Use
  Company Number: GXKR2007GB04991

PATIENT
  Age: 67 Year
  Sex: Male

DRUGS (6)
  1. AMLODIPINE [Suspect]
     Indication: ANGINA PECTORIS
     Dosage: 10 MG, QD, ORAL
     Route: 048
     Dates: start: 20061120
  2. ATENOLOL [Suspect]
     Indication: ANGINA PECTORIS
     Dosage: 100 MG, QD, ORAL
     Route: 048
     Dates: start: 20060302
  3. GLICLAZIDE                         (NGX) (GLICLAZIDE) [Suspect]
     Indication: DIABETES MELLITUS
     Dosage: 80 MG, QD, ORAL
     Route: 048
     Dates: start: 20050620
  4. RAMIPRIL [Suspect]
     Indication: ANGINA PECTORIS
     Dosage: 10 MG, QD, ORAL
     Route: 048
     Dates: start: 20050824
  5. GLUCOPHAGE [Suspect]
     Indication: DIABETES MELLITUS
     Dosage: 500 MG, BID, ORAL
     Route: 048
     Dates: start: 20061120
  6. SIMVASTATIN [Concomitant]

REACTIONS (2)
  - JEALOUS DELUSION [None]
  - SLEEP TERROR [None]
